FAERS Safety Report 7447379-4 (Version None)
Quarter: 2011Q2

REPORT INFORMATION
  Report Type: 
  Country: None (occurrence: None)
  Receive Date: 20110429
  Receipt Date: 20110223
  Transmission Date: 20111010
  Serious: No
  Sender: FDA-Public Use
  Company Number: US-ASTRAZENECA-2011SE10357

PATIENT
  Age: 62 Year
  Sex: Female
  Weight: 64.4 kg

DRUGS (9)
  1. PLAQUENIL [Concomitant]
  2. FLAXSEED OIL [Concomitant]
  3. POTASSIUM [Concomitant]
  4. CALCIUM CITRATE [Concomitant]
  5. MEDROL [Concomitant]
  6. MULTI-VITAMIN [Concomitant]
  7. PRAVASTATIN [Concomitant]
  8. NEXIUM [Suspect]
     Indication: GASTROOESOPHAGEAL REFLUX DISEASE
     Route: 048
  9. MOBIC [Concomitant]

REACTIONS (2)
  - DRUG HYPERSENSITIVITY [None]
  - DRUG EFFECT INCREASED [None]
